FAERS Safety Report 5166467-9 (Version None)
Quarter: 2006Q4

REPORT INFORMATION
  Report Type: 
  Country: None (occurrence: None)
  Receive Date: 20061129
  Receipt Date: 20061115
  Transmission Date: 20070319
  Serious: Yes (Other)
  Sender: FDA-Public Use
  Company Number: 2006SP006475

PATIENT
  Age: 52 Year
  Sex: Female

DRUGS (6)
  1. PEG-INTERFERON (PEGINTERFERON ALFA-2A) [Suspect]
     Indication: HEPATITIS C
     Dates: start: 20030101, end: 20040901
  2. INTERFERON ALFA (MANUFACTURER UNKNOWN) (INTERFERON ALFA-2B) [Suspect]
     Indication: HEPATITIS C
     Dates: start: 20000101
  3. ATORVASTATIN [Concomitant]
  4. PAROXETINE HCL [Concomitant]
  5. RIBAVIRIN [Suspect]
     Indication: HEPATITIS C
     Dates: start: 20030101, end: 20040901
  6. RIBAVIRIN [Suspect]
     Indication: HEPATITIS C
     Dates: start: 20000101

REACTIONS (8)
  - ALOPECIA [None]
  - DEPRESSION [None]
  - DISEASE RECURRENCE [None]
  - GRANULOMA ANNULARE [None]
  - HYPERCHOLESTEROLAEMIA [None]
  - HYPOTHYROIDISM [None]
  - PIGMENTATION DISORDER [None]
  - VIRAL INFECTION [None]
